FAERS Safety Report 6022806-8 (Version None)
Quarter: 2008Q4

REPORT INFORMATION
  Report Type: 
  Country: None (occurrence: None)
  Receive Date: 20081230
  Receipt Date: 20081218
  Transmission Date: 20090506
  Serious: Yes (Other)
  Sender: FDA-Public Use
  Company Number: IT-ELI_LILLY_AND_COMPANY-IT200812004847

PATIENT
  Age: 75 Year
  Sex: Female

DRUGS (2)
  1. ZYPREXA [Suspect]
     Dosage: 120 MG, UNK
  2. SERTRALINE [Concomitant]

REACTIONS (5)
  - DEEP VEIN THROMBOSIS [None]
  - EPILEPSY [None]
  - OVERDOSE [None]
  - PULMONARY EMBOLISM [None]
  - SUICIDE ATTEMPT [None]
